FAERS Safety Report 5688219-3 (Version None)
Quarter: 2008Q1

REPORT INFORMATION
  Report Type: 
  Country: None (occurrence: None)
  Receive Date: 20080327
  Receipt Date: 20080314
  Transmission Date: 20080703
  Serious: Yes (Other)
  Sender: FDA-Public Use
  Company Number: JP-1165594

PATIENT
  Age: 80 Year
  Sex: Female

DRUGS (2)
  1. IOPIDINE [Suspect]
     Indication: EYE LASER SURGERY
     Route: 047
     Dates: start: 20080220, end: 20080220
  2. MYDRIN (ISOCOM) [Concomitant]

REACTIONS (2)
  - BLOOD PRESSURE DECREASED [None]
  - LOSS OF CONSCIOUSNESS [None]
